FAERS Safety Report 9295267 (Version 1)
Quarter: 2013Q2

REPORT INFORMATION
  Report Type: Spontaneous
  Country: US (occurrence: US)
  Receive Date: 20130517
  Receipt Date: 20130517
  Transmission Date: 20140414
  Serious: Yes (Hospitalization)
  Sender: FDA-Public Use
  Company Number: US-ROCHE-1221631

PATIENT
  Sex: Male

DRUGS (4)
  1. PEGASYS [Suspect]
     Indication: HEPATITIS C
     Dosage: 135 MCG/0.5ML
     Route: 058
  2. PEGASYS [Suspect]
     Indication: VARICES OESOPHAGEAL
  3. RIBAVIRIN [Concomitant]
  4. BOCEPREVIR [Concomitant]

REACTIONS (2)
  - Eye irritation [Unknown]
  - Accidental exposure to product [Unknown]
